FAERS Safety Report 23915431 (Version 1)
Quarter: 2024Q2

REPORT INFORMATION
  Report Type: Spontaneous
  Country: US (occurrence: None)
  Receive Date: 20240529
  Receipt Date: 20240529
  Transmission Date: 20240716
  Serious: Yes (Hospitalization)
  Sender: FDA-Public Use
  Company Number: None

PATIENT
  Sex: Female

DRUGS (2)
  1. LITFULO [Suspect]
     Active Substance: RITLECITINIB TOSYLATE
     Indication: Alopecia areata
     Dosage: FREQ: TAKE 1 CAPSULE (50MG TOTAL) BY MOUTH IN THE MORNING?
     Route: 048
     Dates: start: 20231215
  2. OLUMIANT [Concomitant]

REACTIONS (2)
  - Therapy interrupted [None]
  - Femur fracture [None]
